FAERS Safety Report 4914304-7 (Version None)
Quarter: 2006Q1

REPORT INFORMATION
  Report Type: 
  Country: None (occurrence: None)
  Receive Date: 20060216
  Receipt Date: 20060206
  Transmission Date: 20060701
  Serious: Yes (Other)
  Sender: FDA-Public Use
  Company Number: GB-ABBOTT-06P-167-0324204-00

PATIENT
  Age: 48 Year
  Sex: Male
  Weight: 95 kg

DRUGS (2)
  1. CLARITHROMYCIN [Suspect]
     Indication: ORBITAL INFECTION
     Route: 048
     Dates: start: 20060110, end: 20060112
  2. AMOXICILLIN AND CLAVULANATE POTASSIUM [Concomitant]
     Dosage: 250/125
     Route: 048
     Dates: start: 20051209, end: 20051216

REACTIONS (2)
  - ARRHYTHMIA [None]
  - PALPITATIONS [None]
